FAERS Safety Report 20654672 (Version 1)
Quarter: 2022Q1

REPORT INFORMATION
  Report Type: Spontaneous
  Country: US (occurrence: None)
  Receive Date: 20220330
  Receipt Date: 20220330
  Transmission Date: 20220423
  Serious: Yes (unspecified)
  Sender: FDA-Public Use
  Company Number: None

PATIENT
  Sex: Male

DRUGS (1)
  1. CBD [Suspect]
     Active Substance: CAMPHOR (SYNTHETIC)

REACTIONS (2)
  - Vomiting [None]
  - Adverse drug reaction [None]

NARRATIVE: CASE EVENT DATE: 20220322
